FAERS Safety Report 9548386 (Version 3)
Quarter: 2014Q1

REPORT INFORMATION
  Report Type: Spontaneous
  Country: GB (occurrence: GB)
  Receive Date: 20130924
  Receipt Date: 20140203
  Transmission Date: 20141002
  Serious: Yes (Other)
  Sender: FDA-Public Use
  Company Number: PHFR2013GB005394

PATIENT
  Age: 67 Year
  Sex: Male

DRUGS (1)
  1. TASIGNA [Suspect]
     Indication: CHRONIC MYELOID LEUKAEMIA
     Dosage: 400 MG, BID
     Route: 048
     Dates: start: 200809, end: 201308

REACTIONS (4)
  - Non-Hodgkin^s lymphoma [Recovering/Resolving]
  - Second primary malignancy [Recovering/Resolving]
  - Tumour marker increased [Not Recovered/Not Resolved]
  - Anaemia [Not Recovered/Not Resolved]
